FAERS Safety Report 24939241 (Version 3)
Quarter: 2025Q1

REPORT INFORMATION
  Report Type: Spontaneous
  Country: TR (occurrence: TR)
  Receive Date: 20250206
  Receipt Date: 20250327
  Transmission Date: 20250409
  Serious: Yes (Other)
  Sender: ALEXION PHARMACEUTICALS
  Company Number: TR-ASTRAZENECA-202502TUR003016TR

PATIENT
  Age: 50 Year
  Weight: 70 kg

DRUGS (1)
  1. SOLIRIS [Suspect]
     Active Substance: ECULIZUMAB
     Indication: Atypical haemolytic uraemic syndrome
     Dosage: 900 MILLIGRAM, QW

REACTIONS (3)
  - Delirium [Recovered/Resolved]
  - Platelet count increased [Unknown]
  - Blood lactate dehydrogenase decreased [Unknown]
